FAERS Safety Report 20816754 (Version 3)
Quarter: 2022Q2

REPORT INFORMATION
  Report Type: Report from Study
  Country: CO (occurrence: None)
  Receive Date: 20220512
  Receipt Date: 20220629
  Transmission Date: 20220721
  Serious: Yes (Other)
  Sender: FDA-Public Use
  Company Number: CO-Merck Healthcare KGaA-9319161

PATIENT
  Age: 43 Year
  Sex: Male

DRUGS (2)
  1. REBIF [Suspect]
     Active Substance: INTERFERON BETA-1A
     Indication: Product used for unknown indication
     Route: 058
     Dates: start: 20211018
  2. PHENYTOIN [Concomitant]
     Active Substance: PHENYTOIN
     Indication: Product used for unknown indication

REACTIONS (2)
  - Hemiplegia [Not Recovered/Not Resolved]
  - Hypoaesthesia [Not Recovered/Not Resolved]

NARRATIVE: CASE EVENT DATE: 20220427
